FAERS Safety Report 9988955 (Version 2)
Quarter: 2014Q1

REPORT INFORMATION
  Report Type: Report from Study
  Country: PR (occurrence: PR)
  Receive Date: 20140310
  Receipt Date: 20140310
  Transmission Date: 20141002
  Serious: No
  Sender: FDA-Public Use
  Company Number: PR-ABBVIE-12P-131-1005866-00

PATIENT
  Sex: Female
  Weight: 78.09 kg

DRUGS (3)
  1. HUMIRA [Suspect]
     Indication: RHEUMATOID ARTHRITIS
     Route: 058
     Dates: start: 201209
  2. GLIPIZIDE [Concomitant]
     Indication: DIABETES MELLITUS
     Route: 048
  3. COUMADIN [Concomitant]
     Indication: PULMONARY EMBOLISM
     Route: 048

REACTIONS (1)
  - Sinusitis [Recovered/Resolved]
